FAERS Safety Report 24027352 (Version 1)
Quarter: 2024Q2

REPORT INFORMATION
  Report Type: Spontaneous
  Country: US (occurrence: US)
  Receive Date: 20240628
  Receipt Date: 20240628
  Transmission Date: 20240715
  Serious: No
  Sender: FDA-Public Use
  Company Number: US-SCILEX PHARMACEUTICALS INC.-US-SOR-23-00063

PATIENT
  Age: 37 Year
  Sex: Female

DRUGS (2)
  1. ELYXYB [Suspect]
     Active Substance: CELECOXIB
     Indication: Migraine
     Dosage: 120MG/4.8M, 1 PER DAY AS NEEDED
     Route: 048
     Dates: start: 202310
  2. ELYXYB [Suspect]
     Active Substance: CELECOXIB
     Dosage: UNK, UNK
     Route: 065
     Dates: start: 20231120, end: 20231120

REACTIONS (11)
  - Asthenia [Unknown]
  - Feeling jittery [Recovering/Resolving]
  - Tremor [Recovering/Resolving]
  - Malaise [Recovering/Resolving]
  - Vomiting [Recovering/Resolving]
  - Sleep disorder due to general medical condition, insomnia type [Recovering/Resolving]
  - Balance disorder [Recovering/Resolving]
  - Decreased appetite [Recovering/Resolving]
  - Pyrexia [Recovering/Resolving]
  - Nausea [Recovering/Resolving]
  - Drug ineffective [Unknown]

NARRATIVE: CASE EVENT DATE: 20231001
